FAERS Safety Report 8072814-0 (Version None)
Quarter: 2012Q1

REPORT INFORMATION
  Report Type: 
  Country: None (occurrence: None)
  Receive Date: 20120123
  Receipt Date: 20120123
  Transmission Date: 20120608
  Serious: Yes (Other)
  Sender: FDA-Public Use
  Company Number: None

PATIENT
  Sex: Female
  Weight: 148.3262 kg

DRUGS (4)
  1. BYETTA [Suspect]
     Indication: OBESITY
     Dates: start: 20110501
  2. BYETTA [Suspect]
     Indication: TYPE 2 DIABETES MELLITUS
     Dates: start: 20110501
  3. BYETTA [Suspect]
     Indication: OBESITY
     Dates: start: 20120116
  4. BYETTA [Suspect]
     Indication: TYPE 2 DIABETES MELLITUS
     Dates: start: 20120116

REACTIONS (2)
  - CHOLELITHIASIS [None]
  - PANCREATITIS [None]
